FAERS Safety Report 12490227 (Version 2)
Quarter: 2016Q2

REPORT INFORMATION
  Report Type: Spontaneous
  Country: AU (occurrence: AU)
  Receive Date: 20160622
  Receipt Date: 20160625
  Transmission Date: 20160815
  Serious: Yes (Disabling)
  Sender: FDA-Public Use
  Company Number: AU-APOTEX-2016AP009086

PATIENT
  Sex: Male

DRUGS (3)
  1. FENTANYL. [Concomitant]
     Active Substance: FENTANYL
     Indication: PRODUCT USED FOR UNKNOWN INDICATION
     Dosage: 1 DF, EVERY 72 HOURS
     Route: 062
  2. GABAPENTIN. [Suspect]
     Active Substance: GABAPENTIN
     Indication: POST HERPETIC NEURALGIA
     Dosage: 10 DF, QD
     Route: 048
  3. TRAMADOL. [Concomitant]
     Active Substance: TRAMADOL
     Indication: PRODUCT USED FOR UNKNOWN INDICATION
     Dosage: 50 MG, BID
     Route: 048

REACTIONS (5)
  - Muscular weakness [Not Recovered/Not Resolved]
  - Drug level increased [Not Recovered/Not Resolved]
  - Prescribed overdose [Unknown]
  - Gait disturbance [Not Recovered/Not Resolved]
  - Fatigue [Not Recovered/Not Resolved]
